FAERS Safety Report 19657663 (Version 1)
Quarter: 2021Q3

REPORT INFORMATION
  Report Type: Spontaneous
  Country: US (occurrence: US)
  Receive Date: 20210804
  Receipt Date: 20210804
  Transmission Date: 20211014
  Serious: Yes (Death)
  Sender: FDA-Public Use
  Company Number: US-ASTRAZENECA-2021A656388

PATIENT

DRUGS (1)
  1. LYNPARZA [Suspect]
     Active Substance: OLAPARIB
     Dosage: UNKNOWN
     Route: 048

REACTIONS (5)
  - Cough [Fatal]
  - Weight decreased [Fatal]
  - Vomiting [Fatal]
  - Haematochezia [Fatal]
  - Decreased appetite [Fatal]
